FAERS Safety Report 6042532-9 (Version None)
Quarter: 2009Q1

REPORT INFORMATION
  Report Type: 
  Country: None (occurrence: None)
  Receive Date: 20090118
  Receipt Date: 20051214
  Transmission Date: 20090719
  Serious: Yes (Hospitalization)
  Sender: FDA-Public Use
  Company Number: US-PFIZER INC-2008160141

PATIENT
  Sex: Male

DRUGS (23)
  1. CELECOXIB [Suspect]
     Indication: POLYP
     Dosage: 400 MG, 2X/DAY
     Route: 048
     Dates: start: 20001011, end: 20030207
  2. GLUCOPHAGE [Concomitant]
     Dosage: UNK
     Dates: start: 20001012
  3. FIBERCON [Concomitant]
  4. VITAMIN E [Concomitant]
  5. PLENDIL [Concomitant]
  6. PENTOXIFYLLINE [Concomitant]
  7. HYZAAR [Concomitant]
  8. GLUCOTROL XL [Concomitant]
  9. CERTAGEN, ORAL LIQUID [Concomitant]
  10. ASPIRIN [Concomitant]
     Dosage: UNK
     Dates: start: 20020704
  11. PLAVIX [Concomitant]
     Dosage: UNK
     Dates: start: 20020704
  12. ZOCOR [Concomitant]
     Dosage: UNK
     Dates: start: 20020704
  13. NEXIUM [Concomitant]
     Dosage: UNK
     Dates: start: 20020704
  14. PLETAL [Concomitant]
     Dosage: UNK
     Dates: start: 20020704
  15. LOVASTATIN [Concomitant]
     Dosage: UNK
     Dates: start: 20020822
  16. HYDROCHLOROTHIAZIDE [Concomitant]
     Dosage: UNK
     Dates: start: 20020822
  17. LORTAB [Concomitant]
     Dosage: UNK
     Dates: start: 20021005
  18. AVAPRO [Concomitant]
     Dosage: UNK
     Dates: start: 20021002
  19. RED BLOOD CELLS [Concomitant]
     Dosage: UNK
     Dates: start: 20021021, end: 20021022
  20. CEFAZOLIN [Concomitant]
     Dosage: UNK
     Dates: start: 20021022, end: 20021022
  21. LASIX [Concomitant]
     Dosage: UNK
     Dates: start: 20021022, end: 20021022
  22. INSULIN [Concomitant]
     Dosage: UNK
     Dates: start: 20021022, end: 20021023
  23. FERROUS SULFATE [Concomitant]

REACTIONS (3)
  - ANAEMIA [None]
  - AZOTAEMIA [None]
  - OEDEMA PERIPHERAL [None]
